FAERS Safety Report 14279721 (Version 1)
Quarter: 2017Q4

REPORT INFORMATION
  Report Type: Spontaneous
  Country: US (occurrence: US)
  Receive Date: 20171212
  Receipt Date: 20171212
  Transmission Date: 20180321
  Serious: No
  Sender: FDA-Public Use
  Company Number: US-BRISTOL-MYERS SQUIBB COMPANY-BMS-2017-111109

PATIENT
  Sex: Female
  Weight: 136.5 kg

DRUGS (1)
  1. OPDIVO [Suspect]
     Active Substance: NIVOLUMAB
     Indication: LUNG NEOPLASM MALIGNANT
     Dosage: 191.7 MG, Q2WK
     Route: 042
     Dates: start: 201709

REACTIONS (2)
  - Fatigue [Unknown]
  - Pain [Unknown]
